FAERS Safety Report 6945206-2 (Version None)
Quarter: 2010Q3

REPORT INFORMATION
  Report Type: 
  Country: None (occurrence: None)
  Receive Date: 20100827
  Receipt Date: 20100603
  Transmission Date: 20110219
  Serious: No
  Sender: FDA-Public Use
  Company Number: US-KINGPHARMUSA00001-K201000701

PATIENT
  Sex: Female

DRUGS (6)
  1. FLECTOR [Suspect]
     Indication: PAIN IN EXTREMITY
     Dosage: UNK
     Route: 061
     Dates: start: 20100501, end: 20100101
  2. LISINOPRIL [Concomitant]
     Indication: HYPERTENSION
  3. DILTIAZEM [Concomitant]
     Indication: HYPERTENSION
  4. TRAMADOL HYDROCHLORIDE [Concomitant]
     Dosage: UNK, PRN
  5. DICYCLOMINE [Concomitant]
     Dosage: UNK, PRN
  6. NIACIN [Concomitant]

REACTIONS (1)
  - URTICARIA [None]
